FAERS Safety Report 4293528-9 (Version None)
Quarter: 2004Q1

REPORT INFORMATION
  Report Type: 
  Country: None (occurrence: None)
  Receive Date: 20040211
  Receipt Date: 20040211
  Transmission Date: 20041129
  Serious: Yes (Hospitalization)
  Sender: FDA-Public Use
  Company Number: None

PATIENT
  Age: 44 Year
  Sex: Male
  Weight: 77.2 kg

DRUGS (1)
  1. PLAVIX [Suspect]
     Dosage: 300 MG PO
     Dates: start: 20030408

REACTIONS (2)
  - PRURITUS [None]
  - SWELLING FACE [None]
